FAERS Safety Report 12278035 (Version 6)
Quarter: 2016Q3

REPORT INFORMATION
  Report Type: Spontaneous
  Country: CH (occurrence: FI)
  Receive Date: 20160418
  Receipt Date: 20160810
  Transmission Date: 20161109
  Serious: Yes (Life-Threatening)
  Sender: FDA-Public Use
  Company Number: CH-LPDUSPRD-20160311

PATIENT
  Age: 76 Year
  Sex: Male
  Weight: 72 kg

DRUGS (9)
  1. BISOPROLOL KRKA [Concomitant]
     Active Substance: BISOPROLOL FUMARATE
     Dosage: 1.25 MG, 2 IN 1 D
     Route: 048
     Dates: start: 20150603
  2. FERINJECT [Suspect]
     Active Substance: FERRIC CARBOXYMALTOSE
     Dosage: 1 GM IN 500 ML OF 0.9% NACL
     Route: 041
     Dates: start: 20160224, end: 20160224
  3. PANACOD [Concomitant]
     Active Substance: ACETAMINOPHEN\CODEINE PHOSPHATE
     Dosage: 500/30 MG (1-4 PER DAY)
     Route: 048
     Dates: start: 20160224
  4. PREDNISONE. [Concomitant]
     Active Substance: PREDNISONE
     Dosage: 10 MG (10 MG, 1 IN 1 D)
     Route: 048
     Dates: start: 20151124
  5. RELATABS [Concomitant]
     Dosage: 1 DF, 1 IN 1 D
     Route: 048
     Dates: start: 20160126
  6. MINISUN [Concomitant]
     Dosage: 10 MCG (10 MCG, 1 IN 1 D)
     Route: 048
     Dates: start: 20150924
  7. INNOHEP [Concomitant]
     Active Substance: TINZAPARIN SODIUM
     Dosage: 2500 IU
     Route: 058
  8. CIPROFLOXACIN. [Concomitant]
     Active Substance: CIPROFLOXACIN
     Dosage: 1 GM (500 MG, 2 IN 1 D)
     Route: 048
     Dates: start: 20160219, end: 20160301
  9. ONDANSETRON STADA [Concomitant]
     Dosage: DOSE NOT PROVIDED
     Route: 048

REACTIONS (9)
  - Hyperventilation [Unknown]
  - Dyspnoea [Unknown]
  - Heart rate increased [Unknown]
  - Flushing [Unknown]
  - Urticaria [Unknown]
  - Feeling abnormal [Unknown]
  - Oxygen saturation decreased [Unknown]
  - Erythema [Unknown]
  - Blood pressure decreased [Unknown]

NARRATIVE: CASE EVENT DATE: 20160224
